FAERS Safety Report 15603404 (Version 1)
Quarter: 2018Q4

REPORT INFORMATION
  Report Type: Report from Study
  Country: IE (occurrence: IE)
  Receive Date: 20181109
  Receipt Date: 20181109
  Transmission Date: 20190205
  Serious: No
  Sender: FDA-Public Use
  Company Number: IE-JNJFOC-20181107914

PATIENT
  Sex: Male

DRUGS (3)
  1. STELARA [Suspect]
     Active Substance: USTEKINUMAB
     Indication: CROHN^S DISEASE
     Route: 058
     Dates: start: 20180523
  2. MESALAZINE [Concomitant]
     Active Substance: MESALAMINE
     Route: 050
  3. METHOTREXATE. [Concomitant]
     Active Substance: METHOTREXATE
     Route: 050

REACTIONS (2)
  - Liver function test increased [Not Recovered/Not Resolved]
  - Product dose omission [Unknown]

NARRATIVE: CASE EVENT DATE: 2018
